FAERS Safety Report 4844690-8 (Version None)
Quarter: 2005Q4

REPORT INFORMATION
  Report Type: 
  Country: None (occurrence: None)
  Receive Date: 20051201
  Receipt Date: 20051201
  Transmission Date: 20060501
  Serious: Yes (Other)
  Sender: FDA-Public Use
  Company Number: None

PATIENT
  Age: 34 Year
  Sex: Female

DRUGS (1)
  1. LIPOSYN II 20% [Suspect]
     Dates: start: 20051129

REACTIONS (2)
  - INFUSION RELATED REACTION [None]
  - SENSATION OF PRESSURE [None]
